FAERS Safety Report 9677224 (Version 1)
Quarter: 2013Q4

REPORT INFORMATION
  Report Type: Spontaneous
  Country: US (occurrence: None)
  Receive Date: 20131107
  Receipt Date: 20131107
  Transmission Date: 20140711
  Serious: Yes (Life-Threatening)
  Sender: FDA-Public Use
  Company Number: None

PATIENT
  Age: 70 Year
  Sex: Male
  Weight: 79.38 kg

DRUGS (10)
  1. BYSTOLIC [Suspect]
     Indication: HYPERTENSION
     Route: 048
  2. LISINOPRIL [Concomitant]
  3. TAMSULOSIN [Concomitant]
  4. FINASTERDE [Concomitant]
  5. NORVASC [Concomitant]
  6. CALCIUM [Concomitant]
  7. FISH OIL [Concomitant]
  8. VITAMINE D3 [Concomitant]
  9. MAGNESIUM [Concomitant]
  10. ZINC [Concomitant]

REACTIONS (3)
  - Blood pressure systolic increased [None]
  - Drug ineffective [None]
  - Expired drug administered [None]
